FAERS Safety Report 9429364 (Version 1)
Quarter: 2013Q3

REPORT INFORMATION
  Report Type: Report from Study
  Country: US (occurrence: US)
  Receive Date: 20130730
  Receipt Date: 20130730
  Transmission Date: 20140515
  Serious: No
  Sender: FDA-Public Use
  Company Number: US-ABBOTT-13P-163-1053652-00

PATIENT
  Age: 64 Year
  Sex: Female

DRUGS (10)
  1. NIASPAN (COATED) [Suspect]
     Indication: BLOOD CHOLESTEROL INCREASED
     Dates: start: 20130219
  2. CO Q 10 [Concomitant]
     Indication: PRODUCT USED FOR UNKNOWN INDICATION
  3. VITAMIN C [Concomitant]
     Indication: PRODUCT USED FOR UNKNOWN INDICATION
  4. VITAMIN E [Concomitant]
     Indication: PRODUCT USED FOR UNKNOWN INDICATION
  5. VITAMIN B 12 [Concomitant]
     Indication: PRODUCT USED FOR UNKNOWN INDICATION
  6. FISH OIL [Concomitant]
     Indication: PRODUCT USED FOR UNKNOWN INDICATION
  7. ADRENAL SUPPLEMENTS [Concomitant]
     Indication: PRODUCT USED FOR UNKNOWN INDICATION
  8. BOVINE [Concomitant]
     Indication: PRODUCT USED FOR UNKNOWN INDICATION
  9. GENSIN [Concomitant]
     Indication: PRODUCT USED FOR UNKNOWN INDICATION
  10. ROOT EXTRACT [Concomitant]
     Indication: PRODUCT USED FOR UNKNOWN INDICATION

REACTIONS (2)
  - Insomnia [Not Recovered/Not Resolved]
  - Pruritus [Not Recovered/Not Resolved]
